FAERS Safety Report 5830292-3 (Version None)
Quarter: 2008Q3

REPORT INFORMATION
  Report Type: 
  Country: None (occurrence: None)
  Receive Date: 20080801
  Receipt Date: 20080724
  Transmission Date: 20090109
  Serious: Yes (Hospitalization)
  Sender: FDA-Public Use
  Company Number: US-ABBOTT-08P-163-0465487-00

PATIENT
  Sex: Female
  Weight: 65.5 kg

DRUGS (8)
  1. HUMIRA [Suspect]
     Indication: POLYCHONDRITIS
     Route: 058
     Dates: start: 20080501, end: 20080717
  2. METHOTREXATE [Concomitant]
     Indication: POLYCHONDRITIS
     Route: 030
     Dates: start: 20080301, end: 20080717
  3. AZATHIOPRINE [Concomitant]
     Indication: POLYCHONDRITIS
     Dosage: 50 MG DAILY
     Route: 048
     Dates: start: 20080717
  4. ESOMEPRAZOLE MAGNESIUM [Concomitant]
     Indication: GASTROOESOPHAGEAL REFLUX DISEASE
     Dosage: 40 MG DAILY
     Route: 048
     Dates: start: 20080717
  5. CALCIUM WITH VITAMIN D [Concomitant]
     Indication: MINERAL SUPPLEMENTATION
     Route: 048
     Dates: start: 20080717
  6. FOLIC ACID [Concomitant]
     Indication: VITAMIN SUPPLEMENTATION
     Dosage: 1 MG DAILY
     Route: 048
  7. METHYLPREDNISOLONE [Concomitant]
     Indication: POLYCHONDRITIS
     Route: 042
     Dates: start: 20080715, end: 20080720
  8. METHYLPREDNISOLONE [Concomitant]
     Dosage: 60 MG DAILY
     Route: 048
     Dates: start: 20080721

REACTIONS (4)
  - DRY EYE [None]
  - DRY MOUTH [None]
  - HYPERGLYCAEMIA [None]
  - POLYCHONDRITIS [None]
